FAERS Safety Report 5475722-4 (Version None)
Quarter: 2007Q4

REPORT INFORMATION
  Report Type: 
  Country: None (occurrence: None)
  Receive Date: 20071001
  Receipt Date: 20071001
  Transmission Date: 20080405
  Serious: Yes (Other)
  Sender: FDA-Public Use
  Company Number: None

PATIENT
  Sex: Female
  Weight: 45.8133 kg

DRUGS (1)
  1. CHANTIX [Suspect]
     Indication: SMOKING CESSATION THERAPY
     Dosage: 1 TABLET  DAILY
     Dates: start: 20070527, end: 20070531

REACTIONS (5)
  - AMNESIA [None]
  - ASTHENIA [None]
  - CONVULSION [None]
  - FEELING ABNORMAL [None]
  - TREMOR [None]
